FAERS Safety Report 8827617 (Version 2)
Quarter: 2012Q4

REPORT INFORMATION
  Report Type: 
  Country: US (occurrence: US)
  Receive Date: 20121008
  Receipt Date: 20121130
  Transmission Date: 20130627
  Serious: Yes (Hospitalization)
  Sender: FDA-Public Use
  Company Number: US-SANOFI-AVENTIS-2012SA070851

PATIENT
  Age: 55 Year
  Sex: Male

DRUGS (2)
  1. LANTUS [Suspect]
     Indication: TYPE II DIABETES MELLITUS
     Dosage: Dose:40 unit(s)
     Route: 058
     Dates: start: 2011
  2. HUMALOG [Suspect]
     Indication: TYPE II DIABETES MELLITUS
     Dosage: sliding scale
     Route: 065

REACTIONS (2)
  - Localised infection [Unknown]
  - Blood glucose increased [Not Recovered/Not Resolved]
